FAERS Safety Report 9878534 (Version 2)
Quarter: 2014Q1

REPORT INFORMATION
  Report Type: Other
  Country: US (occurrence: US)
  Receive Date: 20140206
  Receipt Date: 20140206
  Transmission Date: 20141002
  Serious: No
  Sender: FDA-Public Use
  Company Number: US-ACORDA-ACO_35144_2013

PATIENT
  Sex: Female
  Weight: 96.15 kg

DRUGS (9)
  1. AMPYRA [Suspect]
     Indication: GAIT DISTURBANCE
     Dosage: 10 MG, BID
     Route: 048
     Dates: start: 2012, end: 20130318
  2. TIZANIDINE [Suspect]
     Indication: MUSCLE SPASMS
     Dosage: 4 MG, 1-2 QHS
     Route: 048
     Dates: start: 201105
  3. BETASERON [Concomitant]
     Indication: MULTIPLE SCLEROSIS
     Dosage: 0.3 MG, QOD
     Route: 058
     Dates: start: 2001
  4. VESICARE [Concomitant]
     Indication: URINARY INCONTINENCE
     Dosage: 10 MG, QHS
     Route: 048
     Dates: start: 200810
  5. MACRODANTIN [Concomitant]
     Indication: URINARY TRACT INFECTION
     Dosage: 100 MG, QID
     Route: 048
     Dates: start: 201207
  6. RANITIDINE [Concomitant]
     Indication: PRODUCT USED FOR UNKNOWN INDICATION
     Dosage: 300 MG, UNK
     Route: 065
  7. VITAMINS [Concomitant]
     Indication: PRODUCT USED FOR UNKNOWN INDICATION
     Dosage: UNK,UNK
     Route: 065
  8. MAXALT [Concomitant]
     Indication: HEADACHE
     Dosage: 10 MG, QD, PRN
     Route: 048
     Dates: start: 201201
  9. HYDROCODONE W/APAP [Concomitant]
     Indication: PAIN
     Dosage: 5/325 MG, TID
     Route: 048
     Dates: start: 201211

REACTIONS (1)
  - Headache [Recovered/Resolved]
